FAERS Safety Report 11600347 (Version 1)
Quarter: 2015Q3

REPORT INFORMATION
  Report Type: Spontaneous
  Country: US (occurrence: US)
  Receive Date: 20150916
  Receipt Date: 20150916
  Transmission Date: 20151125
  Serious: No
  Sender: FDA-Public Use
  Company Number: US-ELI_LILLY_AND_COMPANY-US201407001472

PATIENT
  Sex: Female

DRUGS (5)
  1. HUMALOG MIX75/25 [Suspect]
     Active Substance: INSULIN LISPRO
     Route: 065
  2. HUMALOG MIX75/25 [Suspect]
     Active Substance: INSULIN LISPRO
     Dosage: UNK
     Route: 065
  3. HUMALOG MIX75/25 [Suspect]
     Active Substance: INSULIN LISPRO
     Indication: TYPE 1 DIABETES MELLITUS
     Dosage: UNK
     Route: 065
     Dates: start: 2007
  4. HUMALOG MIX75/25 [Suspect]
     Active Substance: INSULIN LISPRO
     Route: 065
  5. HUMALOG MIX75/25 [Suspect]
     Active Substance: INSULIN LISPRO
     Route: 065

REACTIONS (4)
  - Underdose [Unknown]
  - Drug dose omission [Unknown]
  - Precancerous cells present [Unknown]
  - Incorrect product storage [Unknown]
